FAERS Safety Report 5943804-6 (Version None)
Quarter: 2008Q4

REPORT INFORMATION
  Report Type: 
  Country: None (occurrence: None)
  Receive Date: 20081106
  Receipt Date: 20081104
  Transmission Date: 20090506
  Serious: No
  Sender: FDA-Public Use
  Company Number: US-BAYER-200832219NA

PATIENT
  Age: 40 Year
  Sex: Female
  Weight: 59 kg

DRUGS (2)
  1. ULTRAVIST (PHARMACY BULK) [Suspect]
     Indication: COMPUTERISED TOMOGRAM ABDOMEN
     Dosage: TOTAL DAILY DOSE: 100 ML  UNIT DOSE: 500 ML
     Route: 042
     Dates: start: 20080801, end: 20080801
  2. ORAL CONTRAST [Concomitant]
     Route: 048
     Dates: start: 20080801, end: 20080801

REACTIONS (1)
  - URTICARIA [None]
